FAERS Safety Report 17224220 (Version 2)
Quarter: 2020Q3

REPORT INFORMATION
  Report Type: Spontaneous
  Country: IL (occurrence: IL)
  Receive Date: 20200102
  Receipt Date: 20200108
  Transmission Date: 20201104
  Serious: Yes (Hospitalization, Other)
  Sender: FDA-Public Use
  Company Number: IL-ROCHE-2509145

PATIENT
  Age: 76 Year
  Sex: Male

DRUGS (1)
  1. ALECTINIB. [Suspect]
     Active Substance: ALECTINIB
     Indication: RENAL DISORDER
     Route: 065
     Dates: start: 201911, end: 2019

REACTIONS (4)
  - Peripheral swelling [Unknown]
  - Diarrhoea [Unknown]
  - Renal disorder [Unknown]
  - Dyspnoea [Unknown]

NARRATIVE: CASE EVENT DATE: 201911
